FAERS Safety Report 23922469 (Version 1)
Quarter: 2024Q2

REPORT INFORMATION
  Report Type: Spontaneous
  Country: US (occurrence: US)
  Receive Date: 20240531
  Receipt Date: 20240531
  Transmission Date: 20240716
  Serious: No
  Sender: FDA-Public Use
  Company Number: US-PADAGIS-2024PAD00940

PATIENT

DRUGS (1)
  1. ESTRADIOL VAGINAL [Suspect]
     Active Substance: ESTRADIOL
     Indication: Atrophic vulvovaginitis
     Dosage: 1 G EVERY TTH
     Route: 065

REACTIONS (5)
  - Skin abrasion [Unknown]
  - Vulvovaginal discomfort [Unknown]
  - Underdose [Unknown]
  - Product use issue [Unknown]
  - Product prescribing error [Unknown]
